FAERS Safety Report 17687230 (Version 1)
Quarter: 2020Q2

REPORT INFORMATION
  Report Type: Report from Study
  Country: IT (occurrence: IT)
  Receive Date: 20200421
  Receipt Date: 20200421
  Transmission Date: 20200714
  Serious: Yes (Other)
  Sender: FDA-Public Use
  Company Number: IT-TEVA-2020-IT-1225465

PATIENT
  Age: 25 Year
  Sex: Male

DRUGS (1)
  1. PROVIGIL [Suspect]
     Active Substance: MODAFINIL
     Indication: INTENTIONAL PRODUCT MISUSE
     Dosage: 1 DOSAGE FORMS
     Route: 048
     Dates: start: 20200121, end: 20200122

REACTIONS (4)
  - Hallucination, auditory [Recovering/Resolving]
  - Malaise [Recovering/Resolving]
  - Intentional product misuse [Recovering/Resolving]
  - Feeling jittery [Recovering/Resolving]

NARRATIVE: CASE EVENT DATE: 20200122
